FAERS Safety Report 20846085 (Version 3)
Quarter: 2022Q3

REPORT INFORMATION
  Report Type: Spontaneous
  Country: DE (occurrence: DE)
  Receive Date: 20220518
  Receipt Date: 20220715
  Transmission Date: 20221027
  Serious: Yes (Other)
  Sender: FDA-Public Use
  Company Number: DE-BAUSCH-BL-2022-012110

PATIENT
  Age: 70 Year
  Sex: Male

DRUGS (1)
  1. BRODALUMAB [Suspect]
     Active Substance: BRODALUMAB
     Indication: Psoriasis
     Route: 065
     Dates: start: 202002

REACTIONS (4)
  - Oral neoplasm [Unknown]
  - Pharyngeal abscess [Unknown]
  - Peritonsillar abscess [Unknown]
  - Pharyngitis [Not Recovered/Not Resolved]
